FAERS Safety Report 13081186 (Version 1)
Quarter: 2017Q1

REPORT INFORMATION
  Report Type: Spontaneous
  Country: FR (occurrence: FR)
  Receive Date: 20170103
  Receipt Date: 20170103
  Transmission Date: 20170428
  Serious: Yes (Hospitalization)
  Sender: FDA-Public Use
  Company Number: FR-MYLANLABS-2016M1058013

PATIENT

DRUGS (6)
  1. ESCITALOPRAM [Concomitant]
     Active Substance: ESCITALOPRAM OXALATE
     Indication: DEPRESSION
     Dosage: 10 MG AND FURTHER INCREASED TO 20MG
     Route: 065
  2. BACLOFEN. [Suspect]
     Active Substance: BACLOFEN
     Indication: ALCOHOLISM
     Dosage: INITIATED AT 60MG/DAY, AND GRADUALLY INCREASED TO 270MG/DAY
     Route: 065
     Dates: start: 201403
  3. BACLOFEN. [Suspect]
     Active Substance: BACLOFEN
     Dosage: 270MG/DAY, GRADUALLY REDUCED TO 150MG/DAY
     Route: 065
     Dates: start: 201403
  4. ESCITALOPRAM [Concomitant]
     Active Substance: ESCITALOPRAM OXALATE
     Indication: ANXIETY DISORDER
     Dosage: 20MG AND LATER DISCONTINUED
     Route: 065
  5. ESCITALOPRAM [Concomitant]
     Active Substance: ESCITALOPRAM OXALATE
     Dosage: 10 MG AND FURTHER INCREASED TO 20MG
     Route: 065
  6. ESCITALOPRAM [Concomitant]
     Active Substance: ESCITALOPRAM OXALATE
     Dosage: 20MG AND LATER DISCONTINUED
     Route: 065

REACTIONS (2)
  - Mania [Recovered/Resolved]
  - Fatigue [Unknown]
